FAERS Safety Report 9536455 (Version 1)
Quarter: 2013Q1

REPORT INFORMATION
  Report Type: Spontaneous
  Country: US (occurrence: None)
  Receive Date: 20130326
  Receipt Date: 20130326
  Transmission Date: 20140127
  Serious: Yes (Other)
  Sender: FDA-Public Use
  Company Number: 1289960

PATIENT
  Age: 22 Year
  Sex: Female
  Weight: 52.3 kg

DRUGS (1)
  1. CIPROFLOXACIN IN 5% DEXTROSE [Suspect]
     Indication: PRODUCT USED FOR UNKNOWN INDICATION
     Dosage: 730-
     Route: 042
     Dates: start: 20120516, end: 20120516

REACTIONS (1)
  - Injection site erythema [None]
